FAERS Safety Report 4596250-4 (Version None)
Quarter: 2005Q1

REPORT INFORMATION
  Report Type: 
  Country: None (occurrence: None)
  Receive Date: 20050225
  Receipt Date: 20050203
  Transmission Date: 20050727
  Serious: Yes (Hospitalization, Other)
  Sender: FDA-Public Use
  Company Number: MAG-2005-0000336

PATIENT
  Age: 62 Year
  Sex: Male

DRUGS (3)
  1. MORPHINE SULFATE CR TABLET 60 MG (MORPHINE SULFATE) CR TABLET [Suspect]
     Indication: CANCER PAIN
     Dosage: 60 MG, DAILY, ORAL
     Route: 048
  2. ALPHA GLUCOSIDASE INHIBITORS) [Concomitant]
  3. LAXATIVES [Concomitant]

REACTIONS (6)
  - ABDOMINAL DISTENSION [None]
  - ABDOMINAL PAIN [None]
  - ASCITES [None]
  - CONSTIPATION [None]
  - FLATULENCE [None]
  - PNEUMATOSIS CYSTOIDES INTESTINALIS [None]
